FAERS Safety Report 14808948 (Version 1)
Quarter: 2018Q2

REPORT INFORMATION
  Report Type: Spontaneous
  Country: US (occurrence: US)
  Receive Date: 20180425
  Receipt Date: 20180425
  Transmission Date: 20180711
  Serious: Yes (Hospitalization)
  Sender: FDA-Public Use
  Company Number: US-PFIZER INC-2018124224

PATIENT
  Age: 84 Year
  Sex: Female

DRUGS (33)
  1. PROVENTIL [Concomitant]
     Active Substance: ALBUTEROL
     Indication: DYSPNOEA
     Dosage: UNK, AS NEEDED [2.5 MG /3 ML /TAKE 3 ML VIA NEBULIZER INHALATION FOUR TIMES DAILY]
  2. MELATONIN [Concomitant]
     Active Substance: MELATONIN
     Dosage: 3 MG, 1X/DAY (30 MINUTES BEFORE BEDTIME)
     Route: 048
  3. VITAMIN D3 [Concomitant]
     Active Substance: CHOLECALCIFEROL
     Dosage: 2000 IU, UNK
     Route: 048
  4. PEPCID AC [Concomitant]
     Active Substance: FAMOTIDINE
     Dosage: 20 MG, UNK (TAKE 1 TABLET ORALLY DAILY OR 2 TIMES DAILY)
     Route: 048
  5. VENTOLIN HFA [Concomitant]
     Active Substance: ALBUTEROL SULFATE
     Indication: DYSPNOEA
     Dosage: 90 UG, AS NEEDED
  6. VENTOLIN HFA [Concomitant]
     Active Substance: ALBUTEROL SULFATE
     Indication: COUGH
  7. MYRBETRIQ [Concomitant]
     Active Substance: MIRABEGRON
     Dosage: 50 MG, 1X/DAY
     Route: 048
  8. ALLEGRA ALLERGY [Concomitant]
     Active Substance: FEXOFENADINE HYDROCHLORIDE
     Indication: RESPIRATORY TRACT INFECTION
     Dosage: 180 MG, 1X/DAY
     Route: 048
  9. ZOLOFT [Concomitant]
     Active Substance: SERTRALINE HYDROCHLORIDE
     Dosage: 50 MG, 1X/DAY
     Route: 048
  10. TYLENOL [Concomitant]
     Active Substance: ACETAMINOPHEN
     Indication: PAIN
  11. OMEGA-3 FATTY ACIDS [Concomitant]
     Active Substance: OMEGA-3 FATTY ACIDS
     Dosage: 1000 MG, 1X/DAY [DAILY WITH FOOD]
     Route: 048
  12. VANTIN [Concomitant]
     Active Substance: CEFPODOXIME PROXETIL
     Dosage: 200 MG, 2X/DAY  (1 TAB PO Q12H FOR 7 DAYS)
     Route: 048
  13. VENTOLIN [Concomitant]
     Active Substance: ALBUTEROL SULFATE
     Indication: DYSPNOEA
     Dosage: UNK UNK, AS NEEDED [2.5 MG /3 ML /TAKE 3 ML VIA NEBULIZER INHALATION FOUR TIMES DAILY]
  14. VENTOLIN [Concomitant]
     Active Substance: ALBUTEROL SULFATE
     Indication: WHEEZING
  15. FOLIC ACID. [Concomitant]
     Active Substance: FOLIC ACID
     Dosage: 1 MG, DAILY
     Route: 048
  16. PRILOSEC [Concomitant]
     Active Substance: OMEPRAZOLE MAGNESIUM
     Dosage: 20 MG, UNK
     Route: 048
  17. EFUDEX [Concomitant]
     Active Substance: FLUOROURACIL
     Dosage: UNK
     Route: 061
  18. PROVENTIL [Concomitant]
     Active Substance: ALBUTEROL
     Indication: WHEEZING
  19. IMURAN [Concomitant]
     Active Substance: AZATHIOPRINE
     Dosage: 100 MG, 1X/DAY [TAKE 2 TABLETS]
     Route: 048
  20. TYLENOL WITH CODEINE [Concomitant]
     Active Substance: ACETAMINOPHEN\CODEINE PHOSPHATE
     Indication: PAIN
     Dosage: UNK, AS NEEDED [CODEINE PHOSPHATE-60MG/PARACETAMOL-300MG]TAKE 1 TABLET BY MOUTH EVERY 12 HOURS
     Route: 048
  21. DELTASONE [Concomitant]
     Active Substance: PREDNISONE
     Dosage: 5 MG, 1X/DAY
     Route: 048
  22. LYRICA [Suspect]
     Active Substance: PREGABALIN
     Indication: POLYNEUROPATHY
     Dosage: 100 MG, 2X/DAY [1 CAPSULE EVERY 12 HOUR]
     Route: 048
  23. ZESTRIL [Concomitant]
     Active Substance: LISINOPRIL
     Dosage: 10 MG, 1X/DAY
     Route: 048
  24. CRESTOR [Concomitant]
     Active Substance: ROSUVASTATIN CALCIUM
     Dosage: 5 MG, 1X/DAY
     Route: 048
  25. TYLENOL [Concomitant]
     Active Substance: ACETAMINOPHEN
     Indication: PYREXIA
     Dosage: 1000 MG, AS NEEDED [2 TABS PO Q 12H PRN ]DO NOT EXCEED 6 TABLETS IN 24 HOURS
     Route: 048
  26. NYSTOP [Concomitant]
     Active Substance: NYSTATIN
     Dosage: UNK, 2X/DAY
     Route: 061
  27. CULTURELLE [Concomitant]
     Active Substance: LACTOBACILLUS RHAMNOSUS
     Dosage: 1 DF, DAILY (10 BILLION CELL ORAL CAP)
     Route: 048
  28. FOSAMAX [Concomitant]
     Active Substance: ALENDRONATE SODIUM
     Dosage: 70 MG, WEEKLY[THE MORNING WITH 8 OUNCES OF WATER AT LEAST 30 MINUTES BEFORE THE FIRST FOOD, DRINK]
     Route: 048
  29. VENTOLIN HFA [Concomitant]
     Active Substance: ALBUTEROL SULFATE
     Indication: WHEEZING
  30. PEPCID [Concomitant]
     Active Substance: FAMOTIDINE
     Dosage: 20 MG, UNK (DAILY OR BID)
     Route: 048
  31. PRINIVIL [Concomitant]
     Active Substance: LISINOPRIL
     Dosage: 10 MG, 1X/DAY
     Route: 048
  32. LIDODERM [Concomitant]
     Active Substance: LIDOCAINE
     Dosage: UNK, 1X/DAY (APPLY TO AFFECTED AREA FOR 12 HOURS, THEN REMOVE FOR 12 HOURS, THEN RE-APPLY FOR 12 )
     Route: 062
  33. KENALOG [Concomitant]
     Active Substance: TRIAMCINOLONE ACETONIDE
     Dosage: UNK

REACTIONS (3)
  - Parainfluenzae virus infection [Recovered/Resolved]
  - Diarrhoea [Recovered/Resolved]
  - Clostridium difficile colitis [Recovered/Resolved]

NARRATIVE: CASE EVENT DATE: 20171129
